FAERS Safety Report 6516284-X (Version None)
Quarter: 2009Q4

REPORT INFORMATION
  Report Type: 
  Country: None (occurrence: None)
  Receive Date: 20091223
  Receipt Date: 20091215
  Transmission Date: 20100525
  Serious: Yes (Disabling)
  Sender: FDA-Public Use
  Company Number: JP-ROCHE-645463

PATIENT
  Sex: Male
  Weight: 55 kg

DRUGS (14)
  1. AVASTIN [Suspect]
     Indication: RECTAL CANCER METASTATIC
     Route: 041
     Dates: start: 20081007, end: 20090408
  2. AVASTIN [Suspect]
     Dosage: DOSE DECREASED
     Route: 041
     Dates: start: 20090428, end: 20090519
  3. TOPOTECAN [Concomitant]
     Route: 041
     Dates: start: 20081007, end: 20090519
  4. FLUOROURACIL [Concomitant]
     Route: 040
     Dates: start: 20081007, end: 20090519
  5. FLUOROURACIL [Concomitant]
     Route: 040
     Dates: end: 20090501
  6. LEVOFOLINATE [Concomitant]
     Route: 041
     Dates: start: 20081008, end: 20090519
  7. FASTIC [Concomitant]
     Route: 048
  8. ALOSENN [Concomitant]
     Route: 048
  9. NAUZELIN [Concomitant]
     Dosage: ROUTE: ORAL FORMULATION (NOT OTHERWISE SPECIFIED)
     Route: 048
  10. FERROMIA [Concomitant]
     Dosage: ROUTE: ORAL FORMULATION (NOT OTHERWISE SPECIFIED)
     Route: 048
  11. ZANTAC [Concomitant]
     Route: 065
  12. MAGLAX [Concomitant]
     Route: 048
  13. OXYCONTIN [Concomitant]
     Dosage: FORM: SUSTAINED RELEASE TABLET
     Route: 048
  14. OXINORM [Concomitant]
     Route: 048

REACTIONS (3)
  - BLOOD PRESSURE INCREASED [None]
  - PROTEINURIA [None]
  - RENAL IMPAIRMENT [None]
